FAERS Safety Report 9678042 (Version 1)
Quarter: 2013Q4

REPORT INFORMATION
  Report Type: Spontaneous
  Country: FR (occurrence: FR)
  Receive Date: 20131108
  Receipt Date: 20131108
  Transmission Date: 20140711
  Serious: Yes (Other)
  Sender: FDA-Public Use
  Company Number: FR-ROXANE LABORATORIES, INC.-2013-RO-01785RO

PATIENT
  Age: 65 Year
  Sex: Male
  Weight: 52 kg

DRUGS (9)
  1. LITHIUM CARBONATE [Suspect]
     Indication: BIPOLAR I DISORDER
  2. SUXAMETHONIUM [Suspect]
     Indication: GENERAL ANAESTHESIA
     Dosage: 100 MG
  3. FLUOXETINE [Concomitant]
     Indication: BIPOLAR I DISORDER
  4. SODIUM VALPROATE [Concomitant]
     Indication: BIPOLAR I DISORDER
  5. OXAZEPAM [Concomitant]
     Indication: BIPOLAR I DISORDER
  6. PIPAMPERONE [Concomitant]
     Indication: BIPOLAR I DISORDER
  7. CYAMEZANINE [Concomitant]
     Indication: BIPOLAR I DISORDER
  8. PROPOFOL [Concomitant]
     Indication: GENERAL ANAESTHESIA
     Dosage: 20 MG
  9. SEVOFLURANE [Concomitant]
     Indication: GENERAL ANAESTHESIA

REACTIONS (1)
  - Hypotonia [Recovered/Resolved]
